FAERS Safety Report 8274974-5 (Version None)
Quarter: 2012Q2

REPORT INFORMATION
  Report Type: 
  Country: None (occurrence: None)
  Receive Date: 20120411
  Receipt Date: 20120328
  Transmission Date: 20120825
  Serious: Yes (Other)
  Sender: FDA-Public Use
  Company Number: CA-ROCHE-1038833

PATIENT
  Sex: Female

DRUGS (6)
  1. SINGULAIR [Concomitant]
  2. APO-SALVENT [Concomitant]
  3. XOLAIR [Suspect]
     Indication: ASTHMA
     Route: 058
     Dates: start: 20110914
  4. XOLAIR [Suspect]
     Dates: start: 20120104
  5. SYMBICORT [Concomitant]
  6. XOLAIR [Suspect]
     Dates: start: 20120328

REACTIONS (10)
  - INJECTION SITE PARAESTHESIA [None]
  - INJECTION SITE PAIN [None]
  - ROAD TRAFFIC ACCIDENT [None]
  - PAIN [None]
  - DISCOMFORT [None]
  - NASOPHARYNGITIS [None]
  - PARAESTHESIA [None]
  - BITE [None]
  - LOWER RESPIRATORY TRACT INFECTION [None]
  - OEDEMA PERIPHERAL [None]
